FAERS Safety Report 18103286 (Version 2)
Quarter: 2020Q4

REPORT INFORMATION
  Report Type: Spontaneous
  Country: US (occurrence: US)
  Receive Date: 20200803
  Receipt Date: 20201109
  Transmission Date: 20210113
  Serious: No
  Sender: FDA-Public Use
  Company Number: US-PFIZER INC-2020290185

PATIENT
  Age: 34 Year
  Sex: Female

DRUGS (5)
  1. ADVIL [Suspect]
     Active Substance: IBUPROFEN
     Indication: ANALGESIC THERAPY
     Dosage: UNK (USUALLY TAKE 600-800 MG )
  2. ADVIL [Suspect]
     Active Substance: IBUPROFEN
     Indication: PYREXIA
  3. ADVIL [Suspect]
     Active Substance: IBUPROFEN
     Indication: ANTIPYRESIS
  4. ADVIL [Suspect]
     Active Substance: IBUPROFEN
     Indication: INFLAMMATION
  5. ADVIL [Suspect]
     Active Substance: IBUPROFEN
     Indication: OROPHARYNGEAL PAIN

REACTIONS (1)
  - Nausea [Unknown]
